FAERS Safety Report 9254201 (Version 3)
Quarter: 2014Q2

REPORT INFORMATION
  Report Type: Report from Study
  Country: AR (occurrence: AR)
  Receive Date: 20130425
  Receipt Date: 20140428
  Transmission Date: 20141212
  Serious: Yes (Other)
  Sender: FDA-Public Use
  Company Number: PHHY2013AR040277

PATIENT
  Age: 79 Year
  Sex: Female

DRUGS (2)
  1. ACLASTA [Suspect]
     Indication: OSTEOPOROSIS
     Dosage: UNK UKN, ANNUALLY
     Route: 042
     Dates: start: 2009
  2. ACLASTA [Suspect]
     Dosage: UNK UKN, ANNUALLY
     Route: 042
     Dates: start: 2012

REACTIONS (5)
  - Cataract [Recovering/Resolving]
  - Aphasia [Recovering/Resolving]
  - Cystoid macular oedema [Recovering/Resolving]
  - Visual acuity reduced [Recovering/Resolving]
  - Eye pain [Recovering/Resolving]
